FAERS Safety Report 17019276 (Version 2)
Quarter: 2019Q4

REPORT INFORMATION
  Report Type: Spontaneous
  Country: AT (occurrence: AT)
  Receive Date: 20191112
  Receipt Date: 20191124
  Transmission Date: 20200122
  Serious: Yes (Death, Hospitalization)
  Sender: FDA-Public Use
  Company Number: AT-B.I. PHARMACEUTICALS,INC./RIDGEFIELD-2019-BI-113132

PATIENT
  Age: 74 Year
  Sex: Male
  Weight: 75 kg

DRUGS (5)
  1. PRADAXA [Suspect]
     Active Substance: DABIGATRAN ETEXILATE MESYLATE
     Indication: EMBOLISM VENOUS
     Route: 048
     Dates: start: 20190925, end: 20191001
  2. AMLODIPINE [Concomitant]
     Active Substance: AMLODIPINE BESYLATE
     Indication: HYPERTENSION
     Route: 065
  3. PANTOPRAZOL [PANTOPRAZOLE] [Concomitant]
     Active Substance: PANTOPRAZOLE
     Indication: GASTRITIS
  4. THYREX [Concomitant]
     Active Substance: LEVOTHYROXINE SODIUM
     Indication: HYPOTHYROIDISM
  5. SUCRALFAT [Concomitant]
     Active Substance: SUCRALFATE
     Indication: GASTRITIS

REACTIONS (2)
  - Embolism venous [Fatal]
  - Cerebral haemorrhage [Fatal]
